FAERS Safety Report 9385846 (Version 1)
Quarter: 2013Q3

REPORT INFORMATION
  Report Type: Spontaneous
  Country: JP (occurrence: JP)
  Receive Date: 20130705
  Receipt Date: 20130705
  Transmission Date: 20140515
  Serious: Yes (Life-Threatening, Hospitalization)
  Sender: FDA-Public Use
  Company Number: JP-SANOFI-AVENTIS-2013SA054282

PATIENT
  Age: 69 Year
  Sex: Female
  Weight: 32 kg

DRUGS (32)
  1. ELPLAT [Suspect]
     Indication: COLON CANCER
     Route: 041
     Dates: start: 20120406, end: 20120406
  2. ELPLAT [Suspect]
     Indication: COLON CANCER
     Route: 041
     Dates: start: 20120511, end: 20120511
  3. ELPLAT [Suspect]
     Indication: COLON CANCER
     Route: 041
     Dates: start: 20120601, end: 20120601
  4. ELPLAT [Suspect]
     Indication: COLON CANCER
     Route: 041
     Dates: start: 20120622, end: 20120622
  5. CAPECITABINE [Suspect]
     Indication: COLON CANCER
     Route: 048
     Dates: start: 20120406, end: 20120421
  6. CAPECITABINE [Suspect]
     Indication: COLON CANCER
     Route: 048
     Dates: start: 20120511, end: 20120526
  7. CAPECITABINE [Suspect]
     Indication: COLON CANCER
     Route: 048
     Dates: start: 20120601, end: 20120616
  8. CAPECITABINE [Suspect]
     Indication: COLON CANCER
     Route: 048
     Dates: start: 20120622, end: 20120707
  9. GRANISETRON [Concomitant]
     Dates: start: 20120406, end: 20120622
  10. DEXART [Concomitant]
     Dates: start: 20120406, end: 20120622
  11. LOXONIN [Concomitant]
     Dates: start: 20120213
  12. MUCOSTA [Concomitant]
     Dates: start: 20120213
  13. PURSENNID [Concomitant]
     Dates: start: 20120213
  14. MAGLAX [Concomitant]
     Dates: start: 20120213
  15. BIOFERMIN [Concomitant]
     Dosage: POWDER FORM
     Dates: start: 20120423, end: 20120510
  16. CRAVIT [Concomitant]
     Dates: start: 20120423, end: 20120830
  17. CLOSTRIDIUM BUTYRICUM [Concomitant]
     Dates: start: 20120511, end: 20120707
  18. LOPEMIN [Concomitant]
     Dates: start: 20120704, end: 20120707
  19. GRAN [Concomitant]
     Dates: start: 20120710, end: 20120717
  20. MEROPEN [Concomitant]
     Dates: start: 20120710, end: 20120714
  21. MICAFUNGIN SODIUM [Concomitant]
     Dates: start: 20120711, end: 20120714
  22. VANCOMYCIN [Concomitant]
     Dates: start: 20120712, end: 20120720
  23. GANCICLOVIR [Concomitant]
     Dates: start: 20120728, end: 20120824
  24. CEFTAZIDIME [Concomitant]
     Dates: start: 20120817, end: 20120827
  25. PACETCOOL [Concomitant]
     Dates: start: 20120814, end: 20120816
  26. CIPROXAN [Concomitant]
     Dates: start: 20120723, end: 20120801
  27. ZOSYN [Concomitant]
     Dates: start: 20120715, end: 20120722
  28. ANTITHROMBOTIC AGENTS [Concomitant]
     Dates: start: 20120711, end: 20120717
  29. PLATELETS, HUMAN BLOOD [Concomitant]
     Dates: start: 20120710, end: 20120727
  30. RED BLOOD CELLS, CONCENTRATED [Concomitant]
     Dates: start: 20120710, end: 20120727
  31. PLASMA, FRESH FROZEN [Concomitant]
     Dates: start: 20120710, end: 20120721
  32. FLUCONAZOLE [Concomitant]
     Dates: start: 20120715, end: 20120726

REACTIONS (13)
  - Cytomegalovirus enterocolitis [Recovered/Resolved]
  - Sepsis [Recovered/Resolved]
  - Disseminated intravascular coagulation [Recovered/Resolved]
  - Blood urea increased [Recovered/Resolved]
  - White blood cell count decreased [Recovered/Resolved]
  - Neutrophil count decreased [Recovered/Resolved]
  - Diarrhoea [Recovered/Resolved]
  - Haemoglobin decreased [Recovered/Resolved]
  - Aspartate aminotransferase increased [Recovered/Resolved]
  - Alanine aminotransferase increased [Recovered/Resolved]
  - Blood bilirubin increased [Recovered/Resolved]
  - Blood creatinine increased [Recovered/Resolved]
  - Urinary tract infection [Unknown]
